FAERS Safety Report 20125319 (Version 1)
Quarter: 2021Q4

REPORT INFORMATION
  Report Type: Spontaneous
  Country: VE (occurrence: VE)
  Receive Date: 20211129
  Receipt Date: 20211129
  Transmission Date: 20220303
  Serious: Yes (Other)
  Sender: FDA-Public Use
  Company Number: VE-NOVARTISPH-NVSC2021VE239087

PATIENT
  Sex: Female

DRUGS (1)
  1. GLIVEC [Suspect]
     Active Substance: IMATINIB MESYLATE
     Indication: Chronic myeloid leukaemia
     Dosage: 400 MG (4 X 100 MG TABLETS)
     Route: 065

REACTIONS (13)
  - Joint injury [Unknown]
  - Pelvic fracture [Unknown]
  - Accident [Unknown]
  - Head injury [Unknown]
  - Tonsillitis [Unknown]
  - Anosmia [Unknown]
  - Ageusia [Unknown]
  - COVID-19 [Recovered/Resolved]
  - Osteoarthritis [Unknown]
  - Osteopenia [Unknown]
  - Bone pain [Unknown]
  - Cough [Unknown]
  - Myalgia [Unknown]
